FAERS Safety Report 7031471-2 (Version None)
Quarter: 2010Q4

REPORT INFORMATION
  Report Type: 
  Country: None (occurrence: None)
  Receive Date: 20101006
  Receipt Date: 20100928
  Transmission Date: 20110411
  Serious: Yes (Other)
  Sender: FDA-Public Use
  Company Number: US-PFIZER INC-2008040307

PATIENT
  Sex: Female
  Weight: 90.703 kg

DRUGS (3)
  1. CHANTIX [Suspect]
     Indication: SMOKING CESSATION THERAPY
     Dosage: 1 MG, 2X/DAY
     Dates: start: 20080101, end: 20080101
  2. ALL OTHER THERAPEUTIC PRODUCTS [Concomitant]
  3. CHEMOTHERAPY NOS [Concomitant]

REACTIONS (5)
  - ACTIVITIES OF DAILY LIVING IMPAIRED [None]
  - IMPAIRED DRIVING ABILITY [None]
  - MOVEMENT DISORDER [None]
  - VOMITING [None]
  - WEIGHT INCREASED [None]
